FAERS Safety Report 7602915-X (Version None)
Quarter: 2011Q3

REPORT INFORMATION
  Report Type: 
  Country: None (occurrence: None)
  Receive Date: 20110701
  Receipt Date: 20110624
  Transmission Date: 20111222
  Serious: Yes (Hospitalization)
  Sender: FDA-Public Use
  Company Number: 1000021891

PATIENT
  Age: 57 Year
  Sex: Female

DRUGS (17)
  1. CALCIUM (CALCIUM) (CALCIUM) [Concomitant]
  2. ENOXAPARIN (ENOXAPARIN) (INJECTION) (ENOXAPARIN) [Concomitant]
  3. SALBUTAMOL (SALBUTAMOL) (SALBUTAMOL) [Concomitant]
  4. ADVAIR (SALMETEROL, FLUTICASONE) (SALMETEROL, FLUTICASONE) [Concomitant]
  5. BUDESONIDE [Concomitant]
  6. BACTRIM (TRIMETHOPRIM, SULFAMETHOXAZOLE) (TRIMETHOPRIM, SULFAMETHOXAZO [Concomitant]
  7. ROFLUMILAST (ROFLUMILAST) (TABLETS) [Suspect]
     Dosage: 500 MCG (500 MCG,1 IN 1 D),ORAL
     Route: 048
  8. ASPIRINE (ACETYLSALICYLIC ACID) (ACETYLSALICYLIC ACID) [Concomitant]
  9. VITAMIN D (ERGOCALCIFEROL) (ERGOCALCIFEROL) [Concomitant]
  10. NAPROXEN [Concomitant]
  11. CRESTOR (ROSUVASTATIN) (TABLETS) (ROSUVASTATIN) [Concomitant]
  12. HYDROMORPHONE (HYDROMORPHONE) (HYDROMORPHONE) [Concomitant]
  13. MIRTAZAPINE (MIRTAZAPINE) (TABLETS) (MIRTAZAPINE) [Concomitant]
  14. OXAZEPAM (OXAZEPAM) (TABLETS) (OXAZEPAM) [Concomitant]
  15. TOBRAMYCIN (TOPBRAMYCIN) (INJECTION) (TOBRAMYCIN) [Concomitant]
  16. SPIRIVA (TIOTROPIUM BROMIDE) (CAPSULES) (TIOTROPIUM BROMIDE) [Concomitant]
  17. PANTOPRAZOLE (PANTOPRAZOLE) (PANTOPRAZOLE) [Concomitant]

REACTIONS (3)
  - VOMITING [None]
  - DIARRHOEA [None]
  - DEHYDRATION [None]
